FAERS Safety Report 5355421-X (Version None)
Quarter: 2007Q2

REPORT INFORMATION
  Report Type: 
  Country: None (occurrence: None)
  Receive Date: 20070530
  Receipt Date: 20070117
  Transmission Date: 20071010
  Serious: Yes (Other)
  Sender: FDA-Public Use
  Company Number: US200609003509

PATIENT
  Age: 58 Year
  Sex: Male
  Weight: 82.5 kg

DRUGS (1)
  1. ZYPREXA [Suspect]
     Dosage: 2/D
     Dates: start: 20040101, end: 20050601

REACTIONS (1)
  - PANCREATITIS [None]
